FAERS Safety Report 6448956-X (Version None)
Quarter: 2009Q4

REPORT INFORMATION
  Report Type: 
  Country: None (occurrence: None)
  Receive Date: 20091120
  Receipt Date: 20091117
  Transmission Date: 20100525
  Serious: Yes (Death, Hospitalization)
  Sender: FDA-Public Use
  Company Number: A0817821A

PATIENT
  Age: 70 Year
  Sex: Male
  Weight: 98.6 kg

DRUGS (1)
  1. AVANDIA [Suspect]
     Indication: DIABETES MELLITUS
     Dosage: 8MG PER DAY
     Route: 048
     Dates: end: 20070205

REACTIONS (5)
  - CARDIAC FAILURE CONGESTIVE [None]
  - CARDIAC VALVE DISEASE [None]
  - CONDITION AGGRAVATED [None]
  - ISCHAEMIC CARDIOMYOPATHY [None]
  - SUDDEN CARDIAC DEATH [None]
